FAERS Safety Report 13521680 (Version 1)
Quarter: 2017Q2

REPORT INFORMATION
  Report Type: Spontaneous
  Country: US (occurrence: US)
  Receive Date: 20170507
  Receipt Date: 20170507
  Transmission Date: 20170830
  Serious: Yes (Other)
  Sender: FDA-Public Use
  Company Number: None

PATIENT
  Age: 48 Year
  Sex: Female
  Weight: 72 kg

DRUGS (4)
  1. THYROID [Concomitant]
     Active Substance: LEVOTHYROXINE\LIOTHYRONINE
  2. CYTOMEL [Concomitant]
     Active Substance: LIOTHYRONINE SODIUM
  3. YAZ [Concomitant]
     Active Substance: DROSPIRENONE\ETHINYL ESTRADIOL
  4. BENADRYL EXTRA STRENGTH ITCH STOPPING [Suspect]
     Active Substance: DIPHENHYDRAMINE HYDROCHLORIDE\ZINC ACETATE
     Indication: URTICARIA
     Dosage: ?          QUANTITY:1 1;??3 TIMES A DAY TOPICAL
     Route: 061
     Dates: start: 20170503, end: 20170504

REACTIONS (4)
  - Application site warmth [None]
  - Application site erythema [None]
  - Chemical burn of skin [None]
  - Application site burn [None]

NARRATIVE: CASE EVENT DATE: 20170503
